FAERS Safety Report 9943080 (Version 1)
Quarter: 2014Q1

REPORT INFORMATION
  Report Type: Spontaneous
  Country: IL (occurrence: IL)
  Receive Date: 20140303
  Receipt Date: 20140303
  Transmission Date: 20141002
  Serious: Yes (Other)
  Sender: FDA-Public Use
  Company Number: IL-SA-2014SA023569

PATIENT
  Age: 6 Year
  Sex: Female
  Weight: 23.3 kg

DRUGS (5)
  1. MYOZYME [Suspect]
     Indication: GLYCOGEN STORAGE DISEASE TYPE II
     Route: 042
     Dates: start: 20071126
  2. DIGOXIN [Concomitant]
  3. FUSID [Concomitant]
  4. CARVEDILOL [Concomitant]
  5. ENALAPRIL [Concomitant]

REACTIONS (6)
  - Myopathy [Not Recovered/Not Resolved]
  - Peroneal nerve palsy [Unknown]
  - Asthenia [Unknown]
  - Limb asymmetry [Unknown]
  - Syncope [Unknown]
  - Developmental delay [Unknown]
